FAERS Safety Report 10033203 (Version 1)
Quarter: 2014Q1

REPORT INFORMATION
  Report Type: Spontaneous
  Country: FR (occurrence: FR)
  Receive Date: 20140324
  Receipt Date: 20140324
  Transmission Date: 20141002
  Serious: Yes (Hospitalization)
  Sender: FDA-Public Use
  Company Number: FR-TEVA-468628ISR

PATIENT
  Age: 71 Year
  Sex: Male

DRUGS (2)
  1. DOXORUBICINE TEVA 50MG/25ML [Suspect]
     Indication: SARCOMA
     Dosage: 1 DRIP WITHIN 15 MIN
     Route: 042
     Dates: start: 20071031, end: 20071031
  2. HOLOXAN [Suspect]
     Indication: SARCOMA
     Dosage: 3 PERFUSIONS OF 8 HOURS WITHIN 24 HOURS
     Route: 042
     Dates: start: 20071031, end: 20071101

REACTIONS (3)
  - Encephalopathy [Recovered/Resolved]
  - Confusional state [Recovered/Resolved]
  - Disorientation [Recovered/Resolved]
